FAERS Safety Report 13902737 (Version 1)
Quarter: 2017Q3

REPORT INFORMATION
  Report Type: Spontaneous
  Country: PL (occurrence: PL)
  Receive Date: 20170824
  Receipt Date: 20170824
  Transmission Date: 20171127
  Serious: Yes (Life-Threatening, Hospitalization, Other)
  Sender: FDA-Public Use
  Company Number: PL-CIPLA LTD.-2017PL14806

PATIENT

DRUGS (3)
  1. CARBOPLATIN. [Suspect]
     Active Substance: CARBOPLATIN
     Indication: OVARIAN EPITHELIAL CANCER
     Dosage: 400 MG/M2, PER CYCLE LASTING 3 H WITH 3 WEEKS BREAK BETWEEN CHEMOTHERAPY CYCLES
     Route: 042
     Dates: start: 201304
  2. PACLITAXEL. [Suspect]
     Active Substance: PACLITAXEL
     Indication: OVARIAN EPITHELIAL CANCER
     Dosage: 175 MG/M2, PER CYCLE LASTING 3 H WITH 3 WEEKS BREAK BETWEEN CHEMOTHERAPY CYCLES
     Dates: start: 201505
  3. DOXORUBICIN [Suspect]
     Active Substance: DOXORUBICIN
     Indication: OVARIAN EPITHELIAL CANCER
     Dosage: 50 MG/M2, PER CYCLE, WITH 3 WEEKS BETWEEN CHEMOTHERAPY CYCLES
     Route: 065
     Dates: start: 201412

REACTIONS (1)
  - Drug ineffective [Unknown]

NARRATIVE: CASE EVENT DATE: 2015
